FAERS Safety Report 20998650 (Version 1)
Quarter: 2022Q2

REPORT INFORMATION
  Report Type: Spontaneous
  Country: JP (occurrence: JP)
  Receive Date: 20220623
  Receipt Date: 20220623
  Transmission Date: 20220721
  Serious: No
  Sender: FDA-Public Use
  Company Number: JP-GLAXOSMITHKLINE-JP2022JPN094291

PATIENT

DRUGS (6)
  1. SOTROVIMAB [Suspect]
     Active Substance: SOTROVIMAB
     Dosage: UNK
     Route: 042
  2. COMIRNATY [Suspect]
     Active Substance: TOZINAMERAN
     Dosage: UNK
     Route: 030
  3. COMIRNATY [Suspect]
     Active Substance: TOZINAMERAN
     Dosage: UNK
     Route: 030
  4. CALONAL [Suspect]
     Active Substance: ACETAMINOPHEN
     Dosage: 400 MG, 20 TIMES
     Route: 048
  5. CARBOCYSTEINE [Suspect]
     Active Substance: CARBOCYSTEINE
     Dosage: 1500 MG/DAY
     Route: 048
     Dates: end: 20220418
  6. DEXTROMETHORPHAN HYDROBROMIDE [Suspect]
     Active Substance: DEXTROMETHORPHAN HYDROBROMIDE
     Dosage: 45 MG/DAY
     Route: 048
     Dates: end: 20220418

REACTIONS (1)
  - Exposure during pregnancy [Unknown]
